FAERS Safety Report 20052078 (Version 7)
Quarter: 2022Q2

REPORT INFORMATION
  Report Type: Report from Study
  Country: US (occurrence: US)
  Receive Date: 20211110
  Receipt Date: 20220425
  Transmission Date: 20220721
  Serious: No
  Sender: FDA-Public Use
  Company Number: US-NOVARTISTESTPH-NVSC2021US253841

PATIENT
  Sex: Male

DRUGS (1)
  1. COSENTYX [Suspect]
     Active Substance: SECUKINUMAB
     Indication: Psoriasis
     Dosage: 300 MG, QMO
     Route: 058

REACTIONS (6)
  - Injection site haemorrhage [Unknown]
  - Pain [Unknown]
  - Needle issue [Unknown]
  - Device difficult to use [Unknown]
  - Oropharyngeal pain [Unknown]
  - Dyspnoea [Unknown]
